FAERS Safety Report 8790651 (Version 1)
Quarter: 2012Q4

REPORT INFORMATION
  Report Type: Spontaneous
  Country: US (occurrence: None)
  Receive Date: 20120912
  Receipt Date: 20120912
  Transmission Date: 20130627
  Serious: Yes (Other)
  Sender: FDA-Public Use
  Company Number: None

PATIENT
  Age: 51 Year
  Sex: Female
  Weight: 72.58 kg

DRUGS (1)
  1. FLECTOR [Suspect]
     Indication: INFLAMMATION
     Dosage: 1patch every 12 hours
About 30 hours
     Route: 003
     Dates: start: 20120808, end: 20120810

REACTIONS (8)
  - Pain [None]
  - Application site inflammation [None]
  - Dysmenorrhoea [None]
  - Haemorrhage [None]
  - Nausea [None]
  - Dyspepsia [None]
  - Abdominal pain upper [None]
  - Vomiting [None]
